FAERS Safety Report 7369344-8 (Version None)
Quarter: 2011Q1

REPORT INFORMATION
  Report Type: 
  Country: None (occurrence: None)
  Receive Date: 20110323
  Receipt Date: 20110321
  Transmission Date: 20110831
  Serious: Yes (Hospitalization)
  Sender: FDA-Public Use
  Company Number: D0070714A

PATIENT
  Sex: Female

DRUGS (1)
  1. WELLBUTRIN [Suspect]
     Dosage: 150MG PER DAY
     Route: 065

REACTIONS (6)
  - URTICARIA [None]
  - OEDEMA PERIPHERAL [None]
  - LIP OEDEMA [None]
  - SOMNOLENCE [None]
  - EYELID OEDEMA [None]
  - PRURITUS [None]
